FAERS Safety Report 11292837 (Version 1)
Quarter: 2015Q2

REPORT INFORMATION
  Report Type: Spontaneous
  Country: US (occurrence: None)
  Receive Date: 20150623
  Receipt Date: 20150623
  Transmission Date: 20150821
  Serious: Yes (Other)
  Sender: FDA-Public Use
  Company Number: RB-66826-2014

PATIENT
  Age: 88 Year
  Sex: Male

DRUGS (1)
  1. GUAIFENESIN W/DEXTROMETHORPHAN 1200 MG (RECKITT BENCKISER) [Suspect]
     Active Substance: DEXTROMETHORPHAN\GUAIFENESIN
     Indication: EMPHYSEMA
     Dosage: (1200 MG 1X, TOOK 1 TABLET ON 13-JUN-2014 ORAL)
     Route: 048
     Dates: start: 20140613

REACTIONS (6)
  - Chills [None]
  - Anxiety [None]
  - Somnolence [None]
  - Off label use [None]
  - Nervousness [None]
  - Feeling abnormal [None]

NARRATIVE: CASE EVENT DATE: 20140613
